FAERS Safety Report 8816378 (Version 1)
Quarter: 2012Q4

REPORT INFORMATION
  Report Type: Spontaneous
  Country: US (occurrence: None)
  Receive Date: 20120928
  Receipt Date: 20120928
  Transmission Date: 20130627
  Serious: Yes (Hospitalization)
  Sender: FDA-Public Use
  Company Number: None

PATIENT
  Age: 90 Year
  Sex: Female
  Weight: 73.1 kg

DRUGS (15)
  1. PLAVIX [Suspect]
     Indication: CORONARY ARTERY DISEASE
     Dosage: 75MG DAILY PO CHRONIC
     Route: 048
  2. CHOLECALCIFEROL [Concomitant]
  3. ADVAIR [Concomitant]
  4. APAP [Concomitant]
  5. ZOLOFT [Concomitant]
  6. HYDROCODONE/APAP [Concomitant]
  7. LORAZEPAM [Concomitant]
  8. DIOVAN [Concomitant]
  9. ZANTAC [Concomitant]
  10. OS-CAL [Concomitant]
  11. ROPINIROLE [Concomitant]
  12. SIMVASTATIN [Concomitant]
  13. PHENERGAN [Concomitant]
  14. BENGAY [Concomitant]
  15. BISACODYL [Concomitant]

REACTIONS (2)
  - Erosive oesophagitis [None]
  - Upper gastrointestinal haemorrhage [None]
